FAERS Safety Report 4458835-5 (Version None)
Quarter: 2004Q3

REPORT INFORMATION
  Report Type: 
  Country: None (occurrence: None)
  Receive Date: 20040922
  Receipt Date: 20040922
  Transmission Date: 20050211
  Serious: Yes (Hospitalization)
  Sender: FDA-Public Use
  Company Number: None

PATIENT
  Age: 59 Year
  Sex: Female
  Weight: 73.2 kg

DRUGS (2)
  1. FLUOROURACIL [Suspect]
     Indication: ANAL CANCER
     Dosage: 3550MG
     Dates: start: 20040903, end: 20040907
  2. MITOMYCIN [Suspect]
     Indication: ANAL CANCER
     Dosage: 18 MG IV
     Route: 042
     Dates: start: 20040903

REACTIONS (3)
  - FEBRILE NEUTROPENIA [None]
  - FEELING ABNORMAL [None]
  - SEPSIS [None]
